FAERS Safety Report 19911939 (Version 2)
Quarter: 2021Q4

REPORT INFORMATION
  Report Type: Report from Study
  Country: US (occurrence: US)
  Receive Date: 20211004
  Receipt Date: 20211228
  Transmission Date: 20220303
  Serious: No
  Sender: FDA-Public Use
  Company Number: US-NOVARTISTESTPH-NVSC2021US220647

PATIENT
  Age: 68 Year
  Sex: Female

DRUGS (4)
  1. BEOVU [Suspect]
     Active Substance: BROLUCIZUMAB-DBLL
     Indication: Neovascular age-related macular degeneration
     Dosage: (RIGHT EYE EVERY 8 WEEK)
     Route: 047
     Dates: start: 20200324
  2. BEOVU [Suspect]
     Active Substance: BROLUCIZUMAB-DBLL
     Dosage: (RIGHT EYE EVERY 8 WEEK)
     Route: 047
     Dates: start: 20200524
  3. BEOVU [Suspect]
     Active Substance: BROLUCIZUMAB-DBLL
     Dosage: (RIGHT EYE EVERY 8 WEEK)
     Route: 047
     Dates: start: 20210724
  4. BEOVU [Suspect]
     Active Substance: BROLUCIZUMAB-DBLL
     Dosage: (RIGHT EYE EVERY 8 WEEK)
     Route: 047
     Dates: start: 20210920

REACTIONS (1)
  - Chromatopsia [Unknown]

NARRATIVE: CASE EVENT DATE: 20210920
